FAERS Safety Report 6564297-4 (Version None)
Quarter: 2010Q1

REPORT INFORMATION
  Report Type: 
  Country: None (occurrence: None)
  Receive Date: 20100201
  Receipt Date: 20100119
  Transmission Date: 20100710
  Serious: Yes (Hospitalization, Other)
  Sender: FDA-Public Use
  Company Number: US-CELGENEUS-163-20785-10011417

PATIENT
  Sex: Male

DRUGS (3)
  1. THALOMID [Suspect]
     Route: 048
     Dates: start: 20091001, end: 20090101
  2. THALOMID [Suspect]
     Route: 048
     Dates: start: 20091222
  3. PLATELETS [Concomitant]
     Route: 051
     Dates: start: 20091201, end: 20091201

REACTIONS (1)
  - IDIOPATHIC THROMBOCYTOPENIC PURPURA [None]
